FAERS Safety Report 5618470-X (Version None)
Quarter: 2008Q1

REPORT INFORMATION
  Report Type: 
  Country: None (occurrence: None)
  Receive Date: 20080207
  Receipt Date: 20080201
  Transmission Date: 20080703
  Serious: Yes (Hospitalization)
  Sender: FDA-Public Use
  Company Number: A0707883A

PATIENT
  Age: 79 Year
  Sex: Male
  Weight: 53.6 kg

DRUGS (2)
  1. TOPOTECAN [Suspect]
     Dosage: 4MGM2 CYCLIC
     Route: 042
     Dates: start: 20071119
  2. CARBOPLATIN [Suspect]
     Dosage: 272MG CYCLIC
     Route: 042
     Dates: start: 20071119

REACTIONS (8)
  - ABDOMINAL PAIN UPPER [None]
  - ASTHENIA [None]
  - DEHYDRATION [None]
  - DIARRHOEA [None]
  - HYPOTENSION [None]
  - NEUTROPENIA [None]
  - SYNCOPE [None]
  - THROMBOCYTOPENIA [None]
